FAERS Safety Report 18259861 (Version 2)
Quarter: 2021Q2

REPORT INFORMATION
  Report Type: Spontaneous
  Country: CA (occurrence: CA)
  Receive Date: 20200912
  Receipt Date: 20210422
  Transmission Date: 20210717
  Serious: Yes (Hospitalization, Other)
  Sender: FDA-Public Use
  Company Number: CA-AMGEN-CANSP2020144035

PATIENT
  Age: 25 Year
  Sex: Female

DRUGS (10)
  1. ARANESP [Suspect]
     Active Substance: DARBEPOETIN ALFA
     Indication: ANAEMIA
     Dosage: 150 MICROGRAM, QWK
     Route: 065
  2. ERYTHROPOIETIN [Suspect]
     Active Substance: ERYTHROPOIETIN
     Indication: ANAEMIA
     Route: 065
  3. EPOETIN ALFA [Suspect]
     Active Substance: ERYTHROPOIETIN
     Indication: ANAEMIA
     Dosage: 40000.0 INTERNATIONAL UNIT
     Route: 065
  4. IRON [Suspect]
     Active Substance: IRON
     Indication: ANAEMIA
     Route: 065
  5. ECULIZUMAB [Concomitant]
     Active Substance: ECULIZUMAB
     Indication: PROPHYLAXIS
  6. IMMUNOGLOBULIN I.V [Suspect]
     Active Substance: HUMAN IMMUNOGLOBULIN G
     Indication: PROPHYLAXIS
     Dosage: 0.4 GRAM PER KILOGRAM
     Route: 042
  7. VITAMIN B12 [COBAMAMIDE] [Suspect]
     Active Substance: COBAMAMIDE
     Indication: VITAMIN B12 DEFICIENCY
     Route: 065
  8. RITUXIMAB. [Suspect]
     Active Substance: RITUXIMAB
     Indication: PROPHYLAXIS
     Dosage: 500 MILLIGRAM, Q2WK
     Route: 042
  9. METHYLPREDNISOLONE. [Suspect]
     Active Substance: METHYLPREDNISOLONE
     Indication: PROPHYLAXIS
     Dosage: 250 MILLIGRAM
     Route: 042
  10. HYDROXYUREA. [Suspect]
     Active Substance: HYDROXYUREA
     Indication: SICKLE CELL DISEASE
     Route: 065

REACTIONS (9)
  - Uterine atony [Unknown]
  - Off label use [Unknown]
  - Foetal growth restriction [Unknown]
  - Thrombocytopenia [Unknown]
  - Maternal exposure during pregnancy [Unknown]
  - Anaemia [Recovered/Resolved]
  - Platelet count decreased [Recovered/Resolved]
  - Acute chest syndrome [Recovered/Resolved]
  - Premature delivery [Unknown]
